FAERS Safety Report 5915141-7 (Version None)
Quarter: 2008Q4

REPORT INFORMATION
  Report Type: 
  Country: None (occurrence: None)
  Receive Date: 20081010
  Receipt Date: 20081008
  Transmission Date: 20090506
  Serious: Yes (Hospitalization)
  Sender: FDA-Public Use
  Company Number: US-BAXTER-2008BH008932

PATIENT
  Age: 46 Year
  Sex: Female

DRUGS (3)
  1. DIANEAL [Suspect]
     Indication: PERITONEAL DIALYSIS
     Dosage: DOSE UNIT:UNKNOWN
     Route: 033
     Dates: start: 20060101
  2. DIANEAL [Suspect]
     Indication: PERITONEAL DIALYSIS
     Dosage: DOSE UNIT:UNKNOWN
     Route: 033
     Dates: start: 20060101
  3. UNSPECIFIED ORAL DRUG [Suspect]
     Dosage: DOSE UNIT:UNKNOWN
     Route: 048

REACTIONS (3)
  - ANOREXIA [None]
  - ASTHENIA [None]
  - OVERDOSE [None]
